FAERS Safety Report 6170193-7 (Version None)
Quarter: 2009Q2

REPORT INFORMATION
  Report Type: 
  Country: None (occurrence: None)
  Receive Date: 20090428
  Receipt Date: 20090420
  Transmission Date: 20091009
  Serious: Yes (Other)
  Sender: FDA-Public Use
  Company Number: PHHY2009BR15255

PATIENT
  Age: 46 Year
  Sex: Female

DRUGS (3)
  1. RASILEZ [Suspect]
     Indication: HYPERTENSION
     Dosage: 300 MG (1 TABLET)
     Route: 048
  2. LEXOTAN [Concomitant]
     Indication: SLEEP DISORDER
     Dosage: HALF TABLET AT NIGHT
  3. LEXOTAN [Concomitant]
     Dosage: 1 TABLET AT NIGHT

REACTIONS (3)
  - CONFUSIONAL STATE [None]
  - HEART RATE INCREASED [None]
  - NERVOUS SYSTEM DISORDER [None]
